FAERS Safety Report 5344967-6 (Version None)
Quarter: 2007Q2

REPORT INFORMATION
  Report Type: 
  Country: None (occurrence: None)
  Receive Date: 20070416
  Receipt Date: 20070102
  Transmission Date: 20071010
  Serious: No
  Sender: FDA-Public Use
  Company Number: 2007SP000024

PATIENT
  Age: 64 Year
  Sex: Female
  Weight: 58.9676 kg

DRUGS (14)
  1. LUNESTA [Suspect]
     Indication: INSOMNIA
     Dosage: SEE IMAGE
     Route: 048
     Dates: start: 20060101, end: 20060101
  2. LUNESTA [Suspect]
     Indication: INSOMNIA
     Dosage: SEE IMAGE
     Route: 048
     Dates: start: 20060101, end: 20060901
  3. LUNESTA [Suspect]
     Indication: INSOMNIA
     Dosage: SEE IMAGE
     Route: 048
     Dates: start: 20060901
  4. ATIVAN [Concomitant]
  5. TYLENOL [Concomitant]
  6. EVISTA [Concomitant]
  7. CALCIUM CHLORIDE [Concomitant]
  8. ACCUPRIL [Concomitant]
  9. ASACOL [Concomitant]
  10. AVANDAMET [Concomitant]
  11. GLUCOPHAGE [Concomitant]
  12. SIMVASTATIN [Concomitant]
  13. VYTORIN [Concomitant]
  14. AMBIEN [Concomitant]

REACTIONS (3)
  - BLOOD GLUCOSE INCREASED [None]
  - DRUG EFFECT DECREASED [None]
  - INITIAL INSOMNIA [None]
